FAERS Safety Report 10155555 (Version 1)
Quarter: 2014Q2

REPORT INFORMATION
  Report Type: Spontaneous
  Country: US (occurrence: US)
  Receive Date: 20140506
  Receipt Date: 20140506
  Transmission Date: 20141212
  Serious: No
  Sender: FDA-Public Use
  Company Number: US-009507513-2012SP006083

PATIENT
  Age: 6 Year
  Sex: Female
  Weight: 22.68 kg

DRUGS (3)
  1. CLARITIN ORAL SOLUTION [Suspect]
     Indication: SEASONAL ALLERGY
     Dosage: 5 MG, QD
     Route: 048
  2. CLARITIN ORAL SOLUTION [Suspect]
     Dosage: 5 MG, HS
     Route: 048
     Dates: start: 20120123
  3. CLARITIN ORAL SOLUTION [Suspect]
     Dosage: 10 MG, QAM
     Route: 048
     Dates: start: 20120124

REACTIONS (1)
  - Overdose [Recovered/Resolved]
